FAERS Safety Report 10518050 (Version 1)
Quarter: 2014Q4

REPORT INFORMATION
  Report Type: Spontaneous
  Country: US (occurrence: US)
  Receive Date: 20141015
  Receipt Date: 20141015
  Transmission Date: 20150528
  Serious: No
  Sender: FDA-Public Use
  Company Number: US-BIOGENIDEC-2014BI105493

PATIENT
  Sex: Female

DRUGS (3)
  1. REBIF [Concomitant]
     Active Substance: INTERFERON BETA-1A
  2. AVONEX [Suspect]
     Active Substance: INTERFERON BETA-1A
     Indication: RELAPSING-REMITTING MULTIPLE SCLEROSIS
     Route: 030
  3. COPAXONE [Concomitant]
     Active Substance: GLATIRAMER ACETATE

REACTIONS (12)
  - Hyperaesthesia [Unknown]
  - Burning sensation [Unknown]
  - Multiple allergies [Unknown]
  - Influenza like illness [Unknown]
  - Swelling [Unknown]
  - Neuralgia [Unknown]
  - Frustration [Unknown]
  - Pain [Unknown]
  - Abasia [Unknown]
  - Scar [Unknown]
  - Flushing [Unknown]
  - Bone pain [Unknown]
